FAERS Safety Report 7883794-2 (Version None)
Quarter: 2011Q4

REPORT INFORMATION
  Report Type: 
  Country: None (occurrence: None)
  Receive Date: 20111102
  Receipt Date: 20111026
  Transmission Date: 20120403
  Serious: Yes (Hospitalization, Other)
  Sender: FDA-Public Use
  Company Number: JP-PFIZER INC-2011068847

PATIENT
  Age: 65 Year
  Sex: Male
  Weight: 54 kg

DRUGS (13)
  1. BASEN [Concomitant]
     Indication: DIABETES MELLITUS
     Dosage: 0.2 MG, 3X/DAY
     Route: 048
     Dates: start: 20110217
  2. RABEPRAZOLE [Concomitant]
     Indication: GASTRIC ULCER
     Dosage: 10 MG, 1X/DAY
     Route: 048
     Dates: start: 20090701
  3. LIVALO [Concomitant]
     Indication: HYPERLIPIDAEMIA
     Dosage: 1 MG, 1X/DAY
     Route: 048
     Dates: start: 20090701
  4. PREDNISOLONE [Concomitant]
     Indication: BRAIN OEDEMA
     Dosage: 5 MG, 1X/DAY
     Route: 048
     Dates: start: 20110114
  5. ASPIRIN [Concomitant]
     Indication: ANGINA PECTORIS
     Dosage: 100 MG, 1X/DAY
     Route: 048
     Dates: start: 20090701
  6. OLMESARTAN MEDOXOMIL [Concomitant]
     Indication: HYPERTENSION
     Dosage: 20 MG, 1X/DAY
     Route: 048
     Dates: start: 20090701
  7. SUMIFERON [Concomitant]
     Indication: RENAL CELL CARCINOMA
     Dosage: 300 IU, 1X/DAY
     Route: 058
     Dates: start: 20101006, end: 20110121
  8. TAGAMET [Concomitant]
     Indication: GASTRIC ULCER
     Dosage: 400 MG, 2X/DAY
     Route: 048
     Dates: start: 20101104
  9. PLAVIX [Concomitant]
     Indication: ANGINA PECTORIS
     Dosage: 75 MG, 1X/DAY
     Route: 048
     Dates: start: 20090701
  10. CARVEDILOL [Concomitant]
     Indication: ANGINA PECTORIS
     Dosage: 2.5 MG, 2X/DAY
     Route: 048
     Dates: start: 20090701
  11. AMARYL [Concomitant]
     Indication: DIABETES MELLITUS
     Dosage: 1 MG, 1X/DAY
     Route: 048
     Dates: start: 20110303
  12. SUTENT [Suspect]
     Indication: RENAL CELL CARCINOMA
     Dosage: 50 MG, A DAY
     Route: 048
     Dates: start: 20110302, end: 20110315
  13. BROTIZOLAM [Concomitant]
     Indication: INSOMNIA
     Dosage: 0.25 MG, 1X/DAY
     Route: 048
     Dates: start: 20101104

REACTIONS (2)
  - INTERSTITIAL LUNG DISEASE [None]
  - RENAL IMPAIRMENT [None]
